FAERS Safety Report 4660140-9 (Version None)
Quarter: 2005Q2

REPORT INFORMATION
  Report Type: 
  Country: None (occurrence: None)
  Receive Date: 20050505
  Receipt Date: 20050117
  Transmission Date: 20051028
  Serious: No
  Sender: FDA-Public Use
  Company Number: 2005USFACT00241

PATIENT
  Age: 33 Year
  Sex: Male
  Weight: 89.8 kg

DRUGS (2)
  1. FACTIVE [Suspect]
     Indication: RESPIRATORY TRACT INFECTION BACTERIAL
     Dosage: QD, ORAL
     Route: 048
     Dates: start: 20050106, end: 20050113
  2. PROVENTIL HFA (SALBUTAMOL) [Concomitant]

REACTIONS (1)
  - URTICARIA GENERALISED [None]
